FAERS Safety Report 15924774 (Version 1)
Quarter: 2019Q1

REPORT INFORMATION
  Report Type: Spontaneous
  Country: DE (occurrence: DE)
  Receive Date: 20190206
  Receipt Date: 20190206
  Transmission Date: 20190417
  Serious: Yes (Hospitalization)
  Sender: FDA-Public Use
  Company Number: PHHY2019DE020759

PATIENT
  Age: 66 Year
  Sex: Female

DRUGS (3)
  1. NOVAMIN [Concomitant]
     Indication: PSORIASIS
     Dosage: 500 MG, UNK
     Route: 065
     Dates: start: 20170704
  2. COSENTYX [Suspect]
     Active Substance: SECUKINUMAB
     Indication: PSORIATIC ARTHROPATHY
     Dosage: 300 MG, UNK
     Route: 058
     Dates: start: 20160512, end: 20160608
  3. COSENTYX [Suspect]
     Active Substance: SECUKINUMAB
     Dosage: 300 MG, UNK
     Route: 058
     Dates: start: 20160609

REACTIONS (1)
  - Spinal column stenosis [Unknown]

NARRATIVE: CASE EVENT DATE: 20170704
